FAERS Safety Report 17223397 (Version 1)
Quarter: 2020Q1

REPORT INFORMATION
  Report Type: Spontaneous
  Country: CA (occurrence: CA)
  Receive Date: 20200102
  Receipt Date: 20200102
  Transmission Date: 20200409
  Serious: Yes (Disabling)
  Sender: FDA-Public Use
  Company Number: CA-ROCHE-2505429

PATIENT
  Age: 31 Year
  Sex: Female
  Weight: 70 kg

DRUGS (3)
  1. KETOROLAC [Concomitant]
     Active Substance: KETOROLAC TROMETHAMINE
     Route: 048
  2. RIVOTRIL [Suspect]
     Active Substance: CLONAZEPAM
     Indication: PRODUCT USED FOR UNKNOWN INDICATION
     Route: 048
  3. SERTRALINE HYDROCHLORIDE. [Suspect]
     Active Substance: SERTRALINE HYDROCHLORIDE
     Indication: PRODUCT USED FOR UNKNOWN INDICATION
     Route: 065

REACTIONS (11)
  - Panic attack [Unknown]
  - Depression [Unknown]
  - Overdose [Unknown]
  - Akathisia [Unknown]
  - Dysphoria [Unknown]
  - Loss of consciousness [Unknown]
  - Suicide attempt [Unknown]
  - Restlessness [Unknown]
  - Suicidal ideation [Unknown]
  - Decreased appetite [Unknown]
  - Muscle spasms [Unknown]
